FAERS Safety Report 20417373 (Version 1)
Quarter: 2022Q1

REPORT INFORMATION
  Report Type: Report from Study
  Country: US (occurrence: US)
  Receive Date: 20220202
  Receipt Date: 20220202
  Transmission Date: 20220424
  Serious: Yes (Death)
  Sender: FDA-Public Use
  Company Number: US-ARBOR PHARMACEUTICALS, LLC-US-2022ARB000122

PATIENT
  Age: 48 Year
  Sex: Female

DRUGS (3)
  1. GABAPENTIN ENACARBIL [Suspect]
     Active Substance: GABAPENTIN ENACARBIL
     Indication: Product used for unknown indication
     Dosage: UNK
  2. BUPRENORPHINE [Suspect]
     Active Substance: BUPRENORPHINE
     Indication: Product used for unknown indication
     Dosage: UNK
  3. DIPHENHYDRAMINE [Suspect]
     Active Substance: DIPHENHYDRAMINE
     Indication: Product used for unknown indication
     Dosage: UNK

REACTIONS (6)
  - Cardiomegaly [Fatal]
  - Cardiac failure congestive [Fatal]
  - Pneumonia necrotising [Fatal]
  - Lung abscess [Fatal]
  - Pulmonary oedema [Fatal]
  - Accidental overdose [Fatal]
